FAERS Safety Report 18491989 (Version 2)
Quarter: 2020Q4

REPORT INFORMATION
  Report Type: Spontaneous
  Country: US (occurrence: US)
  Receive Date: 20201111
  Receipt Date: 20201217
  Transmission Date: 20210114
  Serious: No
  Sender: FDA-Public Use
  Company Number: US-PFIZER INC-2020439271

PATIENT
  Age: 79 Year
  Sex: Male

DRUGS (2)
  1. INLYTA [Suspect]
     Active Substance: AXITINIB
     Dosage: 1 MG
     Dates: start: 2020
  2. INLYTA [Suspect]
     Active Substance: AXITINIB
     Indication: RENAL CANCER
     Dosage: 10 MG
     Dates: start: 20200407

REACTIONS (10)
  - Diarrhoea [Unknown]
  - Cough [Unknown]
  - Mucosal inflammation [Not Recovered/Not Resolved]
  - Skin exfoliation [Unknown]
  - Erythema [Unknown]
  - Stomatitis [Not Recovered/Not Resolved]
  - Fatigue [Unknown]
  - Palmar-plantar erythrodysaesthesia syndrome [Not Recovered/Not Resolved]
  - Lip blister [Unknown]
  - Condition aggravated [Unknown]

NARRATIVE: CASE EVENT DATE: 2020
